FAERS Safety Report 6269368-8 (Version None)
Quarter: 2009Q3

REPORT INFORMATION
  Report Type: 
  Country: None (occurrence: None)
  Receive Date: 20090715
  Receipt Date: 20090703
  Transmission Date: 20100115
  Serious: Yes (Life-Threatening, Hospitalization, Other)
  Sender: FDA-Public Use
  Company Number: DE-MYLANLABS-2009S1011172

PATIENT
  Age: 42 Year
  Sex: Female
  Weight: 75 kg

DRUGS (3)
  1. RAMIPRIL DURA PLUS [Suspect]
     Indication: DRUG USE FOR UNKNOWN INDICATION
     Route: 048
     Dates: start: 20090620, end: 20090620
  2. AMITRIPTYLINE HCL [Suspect]
     Indication: DRUG USE FOR UNKNOWN INDICATION
     Route: 048
     Dates: start: 20090620, end: 20090620
  3. LIPROLOG [Suspect]
     Indication: DRUG USE FOR UNKNOWN INDICATION
     Route: 058
     Dates: start: 20090620, end: 20090620

REACTIONS (6)
  - HYPOGLYCAEMIA [None]
  - INTENTIONAL OVERDOSE [None]
  - MYDRIASIS [None]
  - STUPOR [None]
  - SUICIDE ATTEMPT [None]
  - TACHYCARDIA [None]
